FAERS Safety Report 17154569 (Version 1)
Quarter: 2019Q4

REPORT INFORMATION
  Report Type: Spontaneous
  Country: US (occurrence: US)
  Receive Date: 20191214
  Receipt Date: 20191214
  Transmission Date: 20200122
  Serious: Yes (Other)
  Sender: FDA-Public Use
  Company Number: US-ROCHE-2412744

PATIENT
  Sex: Male

DRUGS (5)
  1. RITUXAN [Suspect]
     Active Substance: RITUXIMAB
     Indication: B-CELL LYMPHOMA
     Route: 042
     Dates: start: 200601
  2. RITUXAN [Suspect]
     Active Substance: RITUXIMAB
     Dosage: 1 CYCLE ONCE A MONTH FOR 7 MONTHS
     Route: 042
     Dates: start: 2014
  3. REVLIMID [Concomitant]
     Active Substance: LENALIDOMIDE
     Dosage: FOR 6 MONTHS
     Route: 048
     Dates: start: 2010
  4. BENDAMUSTINE [Concomitant]
     Active Substance: BENDAMUSTINE
     Dosage: 1 CYCLE ONCE A MONTH FOR 7 MONTHS
     Route: 065
     Dates: start: 2014
  5. RITUXAN [Suspect]
     Active Substance: RITUXIMAB
     Route: 042

REACTIONS (6)
  - Dizziness [Recovered/Resolved]
  - Feeling abnormal [Recovered/Resolved]
  - Thrombosis [Recovered/Resolved]
  - Drug ineffective [Unknown]
  - Off label use [Unknown]
  - Fatigue [Recovered/Resolved]

NARRATIVE: CASE EVENT DATE: 2006
